FAERS Safety Report 6170226-8 (Version None)
Quarter: 2009Q2

REPORT INFORMATION
  Report Type: 
  Country: None (occurrence: None)
  Receive Date: 20090428
  Receipt Date: 20090427
  Transmission Date: 20091009
  Serious: Yes (Hospitalization)
  Sender: FDA-Public Use
  Company Number: PHHO2006US21044

PATIENT
  Sex: Male
  Weight: 111.8 kg

DRUGS (6)
  1. CIBADREX T29368+ [Suspect]
     Indication: HYPERTENSION
     Dosage: LEVEL 1
     Route: 048
     Dates: start: 20040604, end: 20050801
  2. CIBADREX T29368+ [Suspect]
     Dosage: OFF STUDY DRUG
     Dates: start: 20050801, end: 20051001
  3. CIBADREX T29368+ [Suspect]
     Dosage: LEVEL 1
     Route: 048
     Dates: start: 20051001
  4. CIBADREX T29368+ [Suspect]
     Dosage: LEVEL 2
     Route: 048
  5. CIBADREX T29368+ [Suspect]
     Dosage: LEVEL 3
     Route: 048
     Dates: end: 20061121
  6. ISOSORBIDE [Suspect]
     Indication: ANGINA PECTORIS
     Dosage: UNK, UNK
     Route: 048

REACTIONS (1)
  - SYNCOPE [None]
